FAERS Safety Report 12945254 (Version 1)
Quarter: 2016Q4

REPORT INFORMATION
  Report Type: Spontaneous
  Country: GR (occurrence: GR)
  Receive Date: 20161115
  Receipt Date: 20161115
  Transmission Date: 20170207
  Serious: Yes (Death)
  Sender: FDA-Public Use
  Company Number: GR-PFIZER INC-2016513257

PATIENT
  Age: 70 Year
  Sex: Male

DRUGS (5)
  1. CLOPIDOGREL [Concomitant]
     Active Substance: CLOPIDOGREL BISULFATE
     Dosage: 1X1, DAILY
  2. CHOLIB [Suspect]
     Active Substance: FENOFIBRATE\SIMVASTATIN
     Dosage: 145 PLUS 20 MG
     Route: 048
     Dates: start: 201607, end: 201609
  3. VIAGRA [Suspect]
     Active Substance: SILDENAFIL CITRATE
     Dosage: UNK
  4. LOPRESSOR [Concomitant]
     Active Substance: METOPROLOL TARTRATE
     Dosage: UNK
  5. SALOSPIR [Concomitant]
     Active Substance: ASPIRIN
     Dosage: 1X1, DAILY

REACTIONS (1)
  - Death [Fatal]

NARRATIVE: CASE EVENT DATE: 201609
